FAERS Safety Report 6188693-2 (Version None)
Quarter: 2009Q2

REPORT INFORMATION
  Report Type: 
  Country: None (occurrence: None)
  Receive Date: 20090511
  Receipt Date: 20090511
  Transmission Date: 20091009
  Serious: No
  Sender: FDA-Public Use
  Company Number: None

PATIENT
  Age: 52 Year
  Sex: Male
  Weight: 72.2 kg

DRUGS (1)
  1. VANCOMYCIN HCL [Suspect]
     Dosage: 1250 MG BID IV
     Route: 042
     Dates: start: 20090407, end: 20090429

REACTIONS (1)
  - NEUTROPENIA [None]
